FAERS Safety Report 8760469 (Version 2)
Quarter: 2012Q4

REPORT INFORMATION
  Report Type: 
  Country: BR (occurrence: BR)
  Receive Date: 20120830
  Receipt Date: 20120918
  Transmission Date: 20130627
  Serious: Yes (Life-Threatening, Hospitalization, Other)
  Sender: FDA-Public Use
  Company Number: PHHY2012BR074538

PATIENT
  Age: 26 Year
  Sex: Female

DRUGS (4)
  1. FORASEQ [Suspect]
     Indication: ASTHMA
     Dosage: 2 capsules each 12 houras (twice daily)
     Dates: start: 2009, end: 20120810
  2. FORASEQ [Suspect]
     Dosage: 2 DF, QD
     Dates: start: 20120820
  3. ALENIA [Suspect]
     Indication: ASTHMA
     Dosage: UNK
     Dates: start: 20120811
  4. OMEPRAZOLE [Concomitant]
     Indication: GASTRIC DISORDER
     Dosage: 1 DF, daily
     Route: 048
     Dates: start: 20120827

REACTIONS (5)
  - Respiratory arrest [Recovered/Resolved]
  - Bronchospasm [Recovered/Resolved]
  - Blindness [Recovered/Resolved]
  - Asthma [Recovered/Resolved]
  - Fatigue [Not Recovered/Not Resolved]
